FAERS Safety Report 11739762 (Version 6)
Quarter: 2016Q1

REPORT INFORMATION
  Report Type: Spontaneous
  Country: US (occurrence: US)
  Receive Date: 20151113
  Receipt Date: 20160304
  Transmission Date: 20160525
  Serious: Yes (Hospitalization)
  Sender: FDA-Public Use
  Company Number: US-ACTELION-A-NJ2015-127087

PATIENT
  Age: 66 Year
  Sex: Male

DRUGS (3)
  1. VELETRI [Suspect]
     Active Substance: EPOPROSTENOL
     Dosage: 26 NG/KG, PER MIN
     Route: 042
  2. NORVASC [Concomitant]
     Active Substance: AMLODIPINE BESYLATE
     Dosage: UNK
  3. VELETRI [Suspect]
     Active Substance: EPOPROSTENOL
     Indication: PULMONARY ARTERIAL HYPERTENSION
     Dosage: 25 NG/KG, PER MIN
     Route: 042
     Dates: start: 20150611

REACTIONS (11)
  - Pneumonia [Unknown]
  - Pyrexia [Unknown]
  - Device related infection [Unknown]
  - Catheter management [Unknown]
  - Abdominal discomfort [Unknown]
  - Staphylococcal infection [Unknown]
  - Diarrhoea [Unknown]
  - Dyspnoea exertional [Recovering/Resolving]
  - Pain in jaw [Unknown]
  - Respiratory disorder [Unknown]
  - Pain [Unknown]
